FAERS Safety Report 8767571 (Version 1)
Quarter: 2012Q4

REPORT INFORMATION
  Report Type: Report from Study
  Country: FR (occurrence: FR)
  Receive Date: 20120904
  Receipt Date: 20120904
  Transmission Date: 20130627
  Serious: Yes (Life-Threatening)
  Sender: FDA-Public Use
  Company Number: PHHO2012FR012701

PATIENT
  Age: 64 Year
  Sex: Female
  Weight: 87 kg

DRUGS (7)
  1. CERTICAN [Suspect]
     Indication: RENAL TRANSPLANT
     Dosage: UNK
     Route: 048
  2. MYCOPHENOLIC ACID [Suspect]
     Indication: RENAL TRANSPLANT
  3. ROVALCYTE [Concomitant]
  4. CRESTOR [Concomitant]
  5. CARDENSIEL [Concomitant]
  6. INSULIN [Concomitant]
  7. EUPANTOL [Concomitant]

REACTIONS (5)
  - Myocardial ischaemia [Recovering/Resolving]
  - Cardiogenic shock [Recovering/Resolving]
  - Cell death [None]
  - Ischaemic hepatitis [None]
  - Anuria [None]
